FAERS Safety Report 12888393 (Version 2)
Quarter: 2016Q4

REPORT INFORMATION
  Report Type: Spontaneous
  Country: US (occurrence: US)
  Receive Date: 20161027
  Receipt Date: 20161107
  Transmission Date: 20170207
  Serious: Yes (Other)
  Sender: FDA-Public Use
  Company Number: US-MALLINCKRODT-T201605358

PATIENT
  Age: 17 Year
  Sex: Female
  Weight: 73 kg

DRUGS (1)
  1. GABLOFEN [Suspect]
     Active Substance: BACLOFEN
     Indication: CEREBRAL PALSY
     Dosage: 634.8 ?G, QD
     Route: 037
     Dates: start: 201105

REACTIONS (6)
  - Oedema peripheral [Not Recovered/Not Resolved]
  - Depressed mood [Not Recovered/Not Resolved]
  - Physical disability [Not Recovered/Not Resolved]
  - Fluid retention [Not Recovered/Not Resolved]
  - Localised oedema [Not Recovered/Not Resolved]
  - Device issue [Recovered/Resolved]

NARRATIVE: CASE EVENT DATE: 201105
